FAERS Safety Report 7483111-6 (Version None)
Quarter: 2011Q2

REPORT INFORMATION
  Report Type: 
  Country: None (occurrence: None)
  Receive Date: 20110516
  Receipt Date: 20101201
  Transmission Date: 20111010
  Serious: Yes (Other)
  Sender: FDA-Public Use
  Company Number: US-AMGEN-USASP2010004942

PATIENT
  Age: 40 Year
  Sex: Female

DRUGS (8)
  1. MELPHALAN HYDROCHLORIDE [Concomitant]
  2. NPLATE [Suspect]
     Indication: IDIOPATHIC THROMBOCYTOPENIC PURPURA
     Dosage: 1 UNK, UNK
     Dates: start: 20100710, end: 20100710
  3. CALCIUM [Concomitant]
  4. DOXYCYCLINE [Concomitant]
  5. PRILOSEC [Concomitant]
  6. INSULIN [Concomitant]
  7. FOLIC ACID [Concomitant]
  8. DIFLUCAN [Concomitant]

REACTIONS (3)
  - SKIN HYPOPIGMENTATION [None]
  - RASH [None]
  - LUPUS-LIKE SYNDROME [None]
